FAERS Safety Report 8330236-9 (Version None)
Quarter: 2012Q2

REPORT INFORMATION
  Report Type: 
  Country: None (occurrence: None)
  Receive Date: 20120502
  Receipt Date: 20120426
  Transmission Date: 20120825
  Serious: Yes (Death, Hospitalization)
  Sender: FDA-Public Use
  Company Number: PL-CELGENEUS-129-C5013-12022917

PATIENT
  Sex: Male
  Weight: 68 kg

DRUGS (7)
  1. DOCETAXEL [Suspect]
     Indication: PROSTATE CANCER
     Dosage: 133 MILLIGRAM
     Route: 065
     Dates: start: 20110630, end: 20110730
  2. PREDNISONE [Suspect]
     Dosage: 10 MILLIGRAM
     Route: 065
     Dates: start: 20111214
  3. PREDNISONE [Suspect]
     Indication: PROSTATE CANCER
     Dosage: 10 MILLIGRAM
     Route: 065
     Dates: start: 20110630
  4. PREDNISONE [Suspect]
     Dosage: 10 MILLIGRAM
     Route: 065
     Dates: start: 20110105, end: 20120119
  5. LENALIDOMIDE [Suspect]
     Indication: PROSTATE CANCER
     Dosage: 25 MILLIGRAM
     Route: 048
     Dates: start: 20110630, end: 20110915
  6. LENALIDOMIDE [Suspect]
     Dosage: 25 MILLIGRAM
     Route: 048
     Dates: start: 20111104, end: 20111117
  7. DOCETAXEL [Suspect]
     Dosage: 106 MILLIGRAM
     Route: 065
     Dates: start: 20110105, end: 20110105

REACTIONS (4)
  - BONE PAIN [None]
  - PROSTATE CANCER [None]
  - PNEUMONIA [None]
  - MULTI-ORGAN FAILURE [None]
